FAERS Safety Report 6407409-5 (Version None)
Quarter: 2009Q4

REPORT INFORMATION
  Report Type: 
  Country: None (occurrence: None)
  Receive Date: 20091020
  Receipt Date: 20091008
  Transmission Date: 20100525
  Serious: Yes (Hospitalization)
  Sender: FDA-Public Use
  Company Number: JP-SANOFI-SYNTHELABO-A01200909968

PATIENT
  Age: 52 Year
  Sex: Female
  Weight: 36 kg

DRUGS (7)
  1. RINDERON [Concomitant]
     Dosage: UNK
     Route: 065
     Dates: end: 20090915
  2. FAMOTIDINE [Suspect]
     Indication: DRUG USE FOR UNKNOWN INDICATION
     Dosage: 20 MG
     Route: 065
     Dates: start: 20090823, end: 20090902
  3. ATARAX [Suspect]
     Indication: DRUG USE FOR UNKNOWN INDICATION
     Dosage: 25 MG
     Route: 048
     Dates: start: 20090823, end: 20090914
  4. ZYRTEC [Suspect]
     Dosage: 10 MG
     Route: 048
     Dates: start: 20090827, end: 20090904
  5. MYSLEE [Suspect]
     Indication: INSOMNIA
     Route: 048
     Dates: start: 20090824, end: 20090914
  6. PREDNISOLONE [Concomitant]
     Dosage: UNK
     Route: 065
     Dates: end: 20090915
  7. ALLEGRA [Suspect]
     Indication: DRUG USE FOR UNKNOWN INDICATION
     Route: 048
     Dates: start: 20090825, end: 20090914

REACTIONS (1)
  - LIVER DISORDER [None]
